FAERS Safety Report 4415552-5 (Version None)
Quarter: 2004Q3

REPORT INFORMATION
  Report Type: 
  Country: None (occurrence: None)
  Receive Date: 20040730
  Receipt Date: 20040716
  Transmission Date: 20050211
  Serious: No
  Sender: FDA-Public Use
  Company Number: 02100-JPN-04-0154

PATIENT
  Age: 84 Year
  Sex: Female

DRUGS (7)
  1. CILOSTAZOL [Suspect]
     Indication: NECROSIS
     Dosage: 100 MG ORAL
     Route: 048
     Dates: start: 20031202, end: 20040507
  2. CILOSTAZOL [Suspect]
     Indication: NECROSIS
     Dosage: 100 MG ORAL
     Route: 048
     Dates: start: 20040705
  3. GLIMEPIRIDE [Concomitant]
  4. LAFUTIDINE [Concomitant]
  5. HUMAN INSULIN [Concomitant]
  6. PRAVASTATIN SODIUM [Concomitant]
  7. VOGLIBOSE [Concomitant]

REACTIONS (2)
  - PLATELET COUNT ABNORMAL [None]
  - PLATELET COUNT DECREASED [None]
